FAERS Safety Report 15807922 (Version 1)
Quarter: 2019Q1

REPORT INFORMATION
  Report Type: Spontaneous
  Country: TR (occurrence: TR)
  Receive Date: 20190110
  Receipt Date: 20190110
  Transmission Date: 20190417
  Serious: Yes (Hospitalization)
  Sender: FDA-Public Use
  Company Number: TR-VALIDUS PHARMACEUTICALS LLC-TR-2019VAL000007

PATIENT
  Age: 69 Year
  Sex: Female

DRUGS (5)
  1. PERINDOPRIL [Suspect]
     Active Substance: PERINDOPRIL
     Indication: CORONARY ARTERY STENOSIS
     Dosage: 10 MG, QD
  2. ATORVASTATIN [Suspect]
     Active Substance: ATORVASTATIN
     Indication: CORONARY ARTERY STENOSIS
     Dosage: 20 MG, QD
  3. METOPROLOL TARTRATE. [Suspect]
     Active Substance: METOPROLOL TARTRATE
     Indication: CORONARY ARTERY STENOSIS
     Dosage: 50 MG, QD
  4. ASPIRIN                            /00002701/ [Suspect]
     Active Substance: ASPIRIN
     Indication: CORONARY ARTERY STENOSIS
     Dosage: 100 MG, QD
  5. CLOPIDOGREL [Suspect]
     Active Substance: CLOPIDOGREL BISULFATE
     Indication: CORONARY ARTERY STENOSIS
     Dosage: 75 MG, QD

REACTIONS (2)
  - Hyperkalaemia [Recovered/Resolved]
  - Atrioventricular block complete [Recovered/Resolved]
